FAERS Safety Report 7866618-9 (Version None)
Quarter: 2011Q4

REPORT INFORMATION
  Report Type: 
  Country: None (occurrence: None)
  Receive Date: 20111028
  Receipt Date: 20110420
  Transmission Date: 20120403
  Serious: No
  Sender: FDA-Public Use
  Company Number: US-GLAXOSMITHKLINE-A0936834A

PATIENT
  Sex: Female

DRUGS (1)
  1. ADVAIR DISKUS 100/50 [Suspect]
     Indication: PRODUCT USED FOR UNKNOWN INDICATION
     Dosage: 1PUFF TWICE PER DAY
     Route: 055
     Dates: start: 20060101

REACTIONS (6)
  - BRONCHITIS [None]
  - SPUTUM DISCOLOURED [None]
  - COUGH [None]
  - OROPHARYNGEAL DISCOMFORT [None]
  - FATIGUE [None]
  - INCREASED VISCOSITY OF BRONCHIAL SECRETION [None]
